FAERS Safety Report 8922323 (Version 1)
Quarter: 2012Q4

REPORT INFORMATION
  Report Type: 
  Country: MD (occurrence: MD)
  Receive Date: 20121126
  Receipt Date: 20121126
  Transmission Date: 20130627
  Serious: Yes (Hospitalization)
  Sender: FDA-Public Use
  Company Number: MD-GE HEALTHCARE MEDICAL DIAGNOSTICS-OMPQ-NO-1211S-1225

PATIENT
  Age: 58 Year
  Sex: Male
  Weight: 82 kg

DRUGS (3)
  1. OMNIPAQUE [Suspect]
     Indication: LUNG NEOPLASM MALIGNANT
     Route: 042
     Dates: start: 20121107, end: 20121107
  2. OMNIPAQUE [Suspect]
     Indication: DIAGNOSTIC PROCEDURE
  3. NACL [Concomitant]

REACTIONS (7)
  - Asthenia [Not Recovered/Not Resolved]
  - Hyperhidrosis [Not Recovered/Not Resolved]
  - Discomfort [Not Recovered/Not Resolved]
  - Headache [Not Recovered/Not Resolved]
  - Nausea [Not Recovered/Not Resolved]
  - Hypopnoea [Not Recovered/Not Resolved]
  - Blood pressure decreased [Not Recovered/Not Resolved]
